FAERS Safety Report 7427043-8 (Version None)
Quarter: 2011Q2

REPORT INFORMATION
  Report Type: 
  Country: None (occurrence: None)
  Receive Date: 20110420
  Receipt Date: 20071210
  Transmission Date: 20111010
  Serious: Yes (Death, Other)
  Sender: FDA-Public Use
  Company Number: US-BAYER-200715983NA

PATIENT
  Age: 52 Year
  Sex: Female
  Weight: 48 kg

DRUGS (47)
  1. TRASYLOL [Suspect]
     Indication: MITRAL VALVE REPLACEMENT
     Dosage: 1 ML, UNK
     Route: 042
     Dates: start: 20050519, end: 20050519
  2. LASIX [Concomitant]
     Dosage: 40 MG
     Route: 048
     Dates: start: 19960605
  3. EPINEPHRINE [Concomitant]
     Dosage: 0.05 MCG/KG/ML
     Route: 042
     Dates: start: 20050519, end: 20050519
  4. ALBUMIN (HUMAN) [Concomitant]
     Dosage: 25 - 100 CC BOLUS
     Route: 042
     Dates: start: 20050519, end: 20050519
  5. RIFAMPIN [Concomitant]
     Dosage: 600 MG, UNK
     Route: 048
     Dates: start: 20040703
  6. SPIRONOLACTONE [Concomitant]
     Dosage: 12.5 MG
     Route: 048
     Dates: start: 20050504, end: 20050511
  7. POTASSIUM [Concomitant]
     Dosage: 30 MEG
     Route: 042
     Dates: start: 20050519, end: 20050519
  8. TYLENOL REGULAR [Concomitant]
     Dosage: 1000 MG
     Route: 048
     Dates: start: 20050504, end: 20050518
  9. ZOFRAN [Concomitant]
     Dosage: 4 MG
     Route: 042
     Dates: start: 20050510, end: 20050518
  10. ISOVUE-128 [Concomitant]
     Dosage: 100 CC
     Dates: start: 19961007
  11. PLATELETS [Concomitant]
     Dosage: 1400 ML
     Route: 042
     Dates: start: 20050519, end: 20050519
  12. FENTANYL [Concomitant]
     Dosage: 1000 MCG
     Route: 042
     Dates: start: 20050519, end: 20050519
  13. VANCOMYCIN [Concomitant]
     Dosage: 1GM
     Route: 042
     Dates: start: 20050519, end: 20050519
  14. VANCOMYCIN [Concomitant]
     Dosage: 1 GM EVERY 12 HOURS
     Route: 042
     Dates: start: 20000101
  15. TRASYLOL [Suspect]
     Indication: AORTIC VALVE REPAIR
     Dosage: 200 ML LOADING DOSE
     Route: 042
     Dates: start: 20050519, end: 20050519
  16. PREMARIN [Concomitant]
  17. GENTAMICIN [Concomitant]
     Dosage: 60 MG EVERY 8 HOURS
     Route: 042
  18. TRASYLOL [Suspect]
     Indication: TRICUSPID VALVE REPAIR
     Dosage: 50 ML PER HOUR DRIP
     Route: 041
     Dates: start: 20040519, end: 20040519
  19. VASOPRESSIN [Concomitant]
     Dosage: .08U/KG/HOUR
     Route: 042
     Dates: start: 20050519, end: 20050519
  20. AMIODARONE [Concomitant]
     Dosage: 200MG
     Route: 042
     Dates: end: 20050518
  21. DIAZEPAM [Concomitant]
     Dosage: UNK
     Route: 048
     Dates: start: 19960607, end: 20050518
  22. ROCEPHIN [Concomitant]
     Dosage: 1 GM
     Route: 042
     Dates: start: 20050519, end: 20050519
  23. VERSED [Concomitant]
     Dosage: 1 MG
     Route: 042
     Dates: start: 20050513, end: 20050518
  24. EPOGEN [Concomitant]
     Dosage: 10,000 U
     Route: 058
     Dates: start: 20050512, end: 20050518
  25. POTASSIUM [Concomitant]
     Dosage: 40 MEQ
     Route: 048
     Dates: start: 20050505, end: 20050506
  26. WHOLE BLOOD [Concomitant]
     Dosage: 4 UNITS
     Route: 042
     Dates: start: 20050519, end: 20050519
  27. LIDOCAINE [Concomitant]
     Dosage: 150
     Route: 042
     Dates: start: 20050519, end: 20050519
  28. CEFAZOLIN [Concomitant]
     Dosage: 1 GM
     Route: 042
     Dates: start: 20050519, end: 20050519
  29. VASOPRESSIN [Concomitant]
     Dosage: .04 MCG
     Route: 042
     Dates: start: 20050503
  30. ZOSYN [Concomitant]
     Dosage: 3.375 MG
     Route: 042
     Dates: start: 20050503, end: 20050518
  31. HYDROCORTISONE [Concomitant]
     Dosage: 20 MG
     Route: 042
     Dates: start: 20050503
  32. LASIX [Concomitant]
     Dosage: 40 MG
     Route: 042
     Dates: start: 20050519, end: 20050519
  33. VERSED [Concomitant]
     Dosage: 20 MG
     Route: 042
     Dates: start: 20050519, end: 20050519
  34. HEPARIN [Concomitant]
     Dosage: 33,000 UNITS
     Route: 042
     Dates: start: 20050519, end: 20050519
  35. NEO-SYNEPHRINOL [Concomitant]
     Dosage: UNK
     Route: 042
     Dates: start: 20050519, end: 20050519
  36. TRASYLOL [Suspect]
     Dosage: 50 ML VIA CARDIOPULMONARY BYPASS
     Dates: start: 20040519, end: 20040519
  37. DOPAMINE HCL [Concomitant]
     Dosage: UNK
     Route: 042
     Dates: start: 20050503
  38. COUMADIN [Concomitant]
     Dosage: TITRATED DOSE
     Route: 048
     Dates: start: 19780101, end: 20050518
  39. ZANTAC [Concomitant]
     Dosage: 150 MG
     Route: 048
     Dates: start: 20050503, end: 20050510
  40. ISOVUE-128 [Concomitant]
     Dosage: 100 CC
     Dates: start: 19960101
  41. DIGOXIN [Concomitant]
     Dosage: 0.125MG
     Route: 048
     Dates: start: 19960801, end: 20050518
  42. ROCEPHIN [Concomitant]
     Dosage: 1GM
     Route: 042
     Dates: start: 20050518, end: 20050518
  43. FENTANYL [Concomitant]
     Dosage: 50 MCG
     Route: 042
     Dates: start: 20050513, end: 20050518
  44. PREVACID [Concomitant]
     Dosage: 30 MG
     Route: 048
     Dates: start: 20050506, end: 20050518
  45. PLASMA [Concomitant]
     Dosage: 2 UNITS
     Route: 042
     Dates: start: 20050519, end: 20050519
  46. PROTAMINE SULFATE [Concomitant]
     Dosage: 100 MG
     Route: 042
     Dates: start: 20050519, end: 20050519
  47. NOREPINEPHRINE BITARTRATE [Concomitant]
     Dosage: 0.02 MCG.KG/MIN
     Dates: start: 20050519, end: 20050519

REACTIONS (14)
  - LOSS OF CONSCIOUSNESS [None]
  - FEAR [None]
  - RENAL INJURY [None]
  - ANHEDONIA [None]
  - INJURY [None]
  - DEATH [None]
  - DEPRESSION [None]
  - EMOTIONAL DISTRESS [None]
  - PAIN [None]
  - UNEVALUABLE EVENT [None]
  - RENAL FAILURE [None]
  - STRESS [None]
  - RENAL IMPAIRMENT [None]
  - ANXIETY [None]
